FAERS Safety Report 5910249-4 (Version None)
Quarter: 2008Q4

REPORT INFORMATION
  Report Type: 
  Country: None (occurrence: None)
  Receive Date: 20081007
  Receipt Date: 20071101
  Transmission Date: 20090506
  Serious: No
  Sender: FDA-Public Use
  Company Number: US-ASTRAZENECA-2007UW25412

PATIENT
  Age: 64 Year
  Sex: Female
  Weight: 77.1 kg

DRUGS (2)
  1. ARIMIDEX [Suspect]
     Indication: BREAST CANCER
     Route: 048
     Dates: start: 20060101
  2. VERAPAMIL [Concomitant]

REACTIONS (3)
  - ALOPECIA [None]
  - BONE PAIN [None]
  - CUTIS LAXA [None]
